FAERS Safety Report 15697884 (Version 1)
Quarter: 2018Q4

REPORT INFORMATION
  Report Type: Spontaneous
  Country: JP (occurrence: JP)
  Receive Date: 20181207
  Receipt Date: 20181207
  Transmission Date: 20190205
  Serious: Yes (Other)
  Sender: FDA-Public Use
  Company Number: JP-ABBVIE-18P-087-2583187-00

PATIENT
  Sex: Female

DRUGS (1)
  1. LUPRON DEPOT [Suspect]
     Active Substance: LEUPROLIDE ACETATE
     Indication: UTERINE LEIOMYOMA
     Dosage: UNK
     Route: 058
     Dates: start: 201806, end: 20180905

REACTIONS (7)
  - Hepatic function abnormal [Unknown]
  - Asthenia [Unknown]
  - Visual acuity reduced [Unknown]
  - Back pain [Unknown]
  - Uterine leiomyoma [Unknown]
  - Gait disturbance [Unknown]
  - Alopecia [Unknown]

NARRATIVE: CASE EVENT DATE: 2018
